FAERS Safety Report 4688625-X (Version None)
Quarter: 2005Q2

REPORT INFORMATION
  Report Type: 
  Country: None (occurrence: None)
  Receive Date: 20050613
  Receipt Date: 20050602
  Transmission Date: 20051028
  Serious: Yes (Death, Hospitalization)
  Sender: FDA-Public Use
  Company Number: JP-BRISTOL-MYERS SQUIBB COMPANY-12997144

PATIENT
  Age: 54 Year
  Sex: Female

DRUGS (1)
  1. ENDOXAN [Suspect]
     Indication: BREAST CANCER
     Route: 041
     Dates: start: 20050517, end: 20050517

REACTIONS (9)
  - ANOREXIA [None]
  - BLOOD BILIRUBIN INCREASED [None]
  - CARDIAC TAMPONADE [None]
  - CARDIO-RESPIRATORY ARREST [None]
  - CARDIOTOXICITY [None]
  - DYSPNOEA [None]
  - HAEMORRHAGIC DIATHESIS [None]
  - LIVER DISORDER [None]
  - MALAISE [None]
